FAERS Safety Report 5091964-4 (Version None)
Quarter: 2006Q3

REPORT INFORMATION
  Report Type: 
  Country: None (occurrence: None)
  Receive Date: 20060825
  Receipt Date: 20060810
  Transmission Date: 20061208
  Serious: Yes (Hospitalization, Other)
  Sender: FDA-Public Use
  Company Number: PHBS2006JP11781

PATIENT
  Age: 44 Year
  Sex: Male

DRUGS (3)
  1. CYCLOSPORINE [Suspect]
     Indication: RENAL TRANSPLANT
     Dates: start: 20011101
  2. METHYLPREDNISOLONE [Suspect]
     Indication: RENAL TRANSPLANT
     Dosage: ORAL
     Route: 048
     Dates: start: 20011101
  3. CELLCEPT [Suspect]
     Indication: RENAL TRANSPLANT
     Dosage: ORAL
     Route: 048
     Dates: start: 20011101

REACTIONS (16)
  - ABDOMINAL PAIN UPPER [None]
  - ANAEMIA [None]
  - BACK PAIN [None]
  - COMPUTERISED TOMOGRAM ABNORMAL [None]
  - CYTOMEGALOVIRUS INFECTION [None]
  - DEPRESSED LEVEL OF CONSCIOUSNESS [None]
  - DIABETES MELLITUS [None]
  - DIABETIC COMPLICATION [None]
  - HAEMODIALYSIS [None]
  - HEPATIC FUNCTION ABNORMAL [None]
  - HYPERLIPIDAEMIA [None]
  - HYPOPROTEINAEMIA [None]
  - INFLAMMATION [None]
  - PANCREATIC CYST [None]
  - PANCREATITIS ACUTE [None]
  - RENAL IMPAIRMENT [None]
